FAERS Safety Report 21444965 (Version 1)
Quarter: 2022Q4

REPORT INFORMATION
  Report Type: Spontaneous
  Country: CZ (occurrence: CZ)
  Receive Date: 20221012
  Receipt Date: 20221012
  Transmission Date: 20230113
  Serious: Yes (Hospitalization)
  Sender: FDA-Public Use
  Company Number: None

PATIENT
  Age: 20 Year
  Sex: Female

DRUGS (3)
  1. OMEPRAZOLE [Suspect]
     Active Substance: OMEPRAZOLE
     Indication: Product used for unknown indication
     Dosage: UNK, (IN TOTAL 400 MG)
     Route: 048
     Dates: start: 20201101
  2. ACETAMINOPHEN [Suspect]
     Active Substance: ACETAMINOPHEN
     Indication: Product used for unknown indication
     Dosage: UNK, (IN TOTAL DOSE 6000 MG)
     Route: 048
     Dates: start: 20201101
  3. IBUPROFEN [Suspect]
     Active Substance: IBUPROFEN
     Indication: Product used for unknown indication
     Dosage: UNK, (IN TOTAL DOSE 4000 MG)
     Route: 048
     Dates: start: 20201101

REACTIONS (3)
  - Suicide attempt [Unknown]
  - Irritability [Unknown]
  - Intentional overdose [Unknown]

NARRATIVE: CASE EVENT DATE: 20201101
